FAERS Safety Report 21646642 (Version 6)
Quarter: 2022Q4

REPORT INFORMATION
  Report Type: Report from Study
  Country: US (occurrence: US)
  Receive Date: 20221127
  Receipt Date: 20221226
  Transmission Date: 20230113
  Serious: Yes (Hospitalization, Other)
  Sender: FDA-Public Use
  Company Number: US-BoehringerIngelheim-2022-BI-204586

PATIENT
  Age: 79 Year
  Sex: Male

DRUGS (3)
  1. OFEV [Suspect]
     Active Substance: NINTEDANIB
     Indication: Idiopathic pulmonary fibrosis
     Route: 048
     Dates: start: 20221114
  2. TYVASO DPI [Suspect]
     Active Substance: TREPROSTINIL
     Indication: Product used for unknown indication
  3. TYVASO DPI [Suspect]
     Active Substance: TREPROSTINIL

REACTIONS (8)
  - Cerebral haemorrhage [Unknown]
  - Fall [Unknown]
  - Blood pressure decreased [Unknown]
  - Cardiac failure congestive [Unknown]
  - Oxygen saturation decreased [Unknown]
  - Headache [Unknown]
  - Pain [Unknown]
  - Dehydration [Unknown]

NARRATIVE: CASE EVENT DATE: 20221101
